FAERS Safety Report 7927838-8 (Version None)
Quarter: 2011Q4

REPORT INFORMATION
  Report Type: 
  Country: None (occurrence: None)
  Receive Date: 20111118
  Receipt Date: 20111118
  Transmission Date: 20120403
  Serious: Yes (Life-Threatening, Hospitalization)
  Sender: FDA-Public Use
  Company Number: None

PATIENT
  Age: 30 Year
  Sex: Female
  Weight: 72.6 kg

DRUGS (1)
  1. YAZ [Suspect]
     Indication: ORAL CONTRACEPTION
     Dosage: 1 TABLET
     Route: 048

REACTIONS (4)
  - IMMOBILE [None]
  - BACK INJURY [None]
  - PULMONARY EMBOLISM [None]
  - ABDOMINAL PAIN [None]
